FAERS Safety Report 17160885 (Version 2)
Quarter: 2019Q4

REPORT INFORMATION
  Report Type: Report from Study
  Country: DE (occurrence: DE)
  Receive Date: 20191216
  Receipt Date: 20191219
  Transmission Date: 20200122
  Serious: Yes (Hospitalization)
  Sender: FDA-Public Use
  Company Number: DE-EISAI MEDICAL RESEARCH-EC-2019-067072

PATIENT
  Age: 72 Year
  Sex: Male
  Weight: 82 kg

DRUGS (7)
  1. TORASEMID [Concomitant]
     Active Substance: TORSEMIDE
  2. LERCANIDIPIN [Concomitant]
     Active Substance: LERCANIDIPINE
  3. LENVATINIB [Suspect]
     Active Substance: LENVATINIB
     Indication: THYROID CANCER
     Route: 048
     Dates: start: 20190313, end: 20191123
  4. METOPROLOL. [Concomitant]
     Active Substance: METOPROLOL
  5. RAMIPRIL. [Concomitant]
     Active Substance: RAMIPRIL
  6. L-THYROX [Concomitant]
     Active Substance: LEVOTHYROXINE SODIUM
  7. MOXONIDIN [Concomitant]
     Active Substance: MOXONIDINE

REACTIONS (2)
  - Chronic kidney disease [Unknown]
  - Proteinuria [Unknown]

NARRATIVE: CASE EVENT DATE: 20191120
